FAERS Safety Report 6625141-X (Version None)
Quarter: 2010Q1

REPORT INFORMATION
  Report Type: 
  Country: None (occurrence: None)
  Receive Date: 20100310
  Receipt Date: 20090902
  Transmission Date: 20100710
  Serious: No
  Sender: FDA-Public Use
  Company Number: US-BIOGENIDEC-2009BI028245

PATIENT
  Age: 16 Year
  Sex: Female

DRUGS (3)
  1. AVONEX [Suspect]
     Indication: MULTIPLE SCLEROSIS
     Route: 030
     Dates: start: 19980302, end: 19990302
  2. AVONEX [Suspect]
     Route: 030
     Dates: start: 20070421
  3. AVONEX [Suspect]
     Route: 030
     Dates: start: 20081124

REACTIONS (1)
  - ADVERSE EVENT [None]
